FAERS Safety Report 6853501-0 (Version None)
Quarter: 2010Q3

REPORT INFORMATION
  Report Type: 
  Country: None (occurrence: None)
  Receive Date: 20100717
  Receipt Date: 20080126
  Transmission Date: 20110219
  Serious: Yes (Other)
  Sender: FDA-Public Use
  Company Number: US-PFIZER INC-2007102217

PATIENT

DRUGS (1)
  1. CHANTIX [Suspect]

REACTIONS (18)
  - ABNORMAL DREAMS [None]
  - AGGRESSION [None]
  - ANXIETY [None]
  - CONSTIPATION [None]
  - CORRECTIVE LENS USER [None]
  - DEPRESSION [None]
  - DISTURBANCE IN ATTENTION [None]
  - GINGIVAL BLEEDING [None]
  - HEADACHE [None]
  - INSOMNIA [None]
  - LIBIDO DECREASED [None]
  - MALAISE [None]
  - MIGRAINE [None]
  - MOOD SWINGS [None]
  - NAUSEA [None]
  - RESTLESS LEGS SYNDROME [None]
  - SUICIDAL IDEATION [None]
  - VISION BLURRED [None]
